FAERS Safety Report 6279290-9 (Version None)
Quarter: 2009Q3

REPORT INFORMATION
  Report Type: 
  Country: None (occurrence: None)
  Receive Date: 20090723
  Receipt Date: 20081030
  Transmission Date: 20100115
  Serious: Yes (Other)
  Sender: FDA-Public Use
  Company Number: US-AMGEN-KDL317254

PATIENT
  Sex: Female

DRUGS (8)
  1. PROCRIT [Suspect]
     Indication: ANAEMIA
     Dates: start: 20080101, end: 20081001
  2. ADVAIR HFA [Concomitant]
  3. ALBUTEROL [Concomitant]
  4. ENALAPRIL MALEATE [Concomitant]
  5. METOPROLOL SUCCINATE [Concomitant]
  6. FUROSEMIDE [Concomitant]
  7. POTASSIUM CHLORIDE [Concomitant]
  8. AMINOCAPROIC ACID [Concomitant]

REACTIONS (7)
  - ABDOMINAL DISCOMFORT [None]
  - BLOOD PRESSURE INCREASED [None]
  - DIARRHOEA [None]
  - EPISTAXIS [None]
  - FATIGUE [None]
  - HYPERSENSITIVITY [None]
  - PRURITUS GENERALISED [None]
